FAERS Safety Report 12211175 (Version 1)
Quarter: 2016Q1

REPORT INFORMATION
  Report Type: Other
  Country: US (occurrence: GB)
  Receive Date: 20160325
  Receipt Date: 20160325
  Transmission Date: 20160526
  Serious: No
  Sender: FDA-Public Use
  Company Number: GB-WARNER CHILCOTT, LLC-1049699

PATIENT
  Sex: Female
  Weight: 59.55 kg

DRUGS (4)
  1. CALCIUM CARBONATE. [Concomitant]
     Active Substance: CALCIUM CARBONATE
  2. IMODIUM [Concomitant]
     Active Substance: LOPERAMIDE HYDROCHLORIDE
  3. VITAMIN D3 [Concomitant]
     Active Substance: CHOLECALCIFEROL
  4. ACTONEL [Suspect]
     Active Substance: RISEDRONATE SODIUM
     Indication: OSTEOPOROSIS
     Route: 048
     Dates: start: 201501, end: 201512

REACTIONS (7)
  - Breast mass [Recovered/Resolved]
  - Precancerous cells present [Recovered/Resolved]
  - Nasopharyngitis [Recovered/Resolved]
  - Immune system disorder [Recovered/Resolved]
  - Skin papilloma [Not Recovered/Not Resolved]
  - Irritable bowel syndrome [Recovered/Resolved]
  - Sinusitis [Recovered/Resolved]

NARRATIVE: CASE EVENT DATE: 201501
